FAERS Safety Report 9851335 (Version 2)
Quarter: 2014Q1

REPORT INFORMATION
  Report Type: Spontaneous
  Country: US (occurrence: US)
  Receive Date: 20140129
  Receipt Date: 20140130
  Transmission Date: 20141002
  Serious: Yes (Other)
  Sender: FDA-Public Use
  Company Number: US-ROCHE-1340460

PATIENT
  Age: 18 Year
  Sex: Female

DRUGS (2)
  1. NUTROPIN [Suspect]
     Indication: GROWTH HORMONE DEFICIENCY
     Route: 058
  2. NUTROPIN [Suspect]
     Route: 065

REACTIONS (7)
  - Brain neoplasm [Unknown]
  - Gait disturbance [Not Recovered/Not Resolved]
  - Burning sensation [Unknown]
  - Erythema [Unknown]
  - Drug hypersensitivity [Not Recovered/Not Resolved]
  - Pain [Unknown]
  - Scoliosis [Not Recovered/Not Resolved]
